FAERS Safety Report 8791343 (Version 1)
Quarter: 2012Q4

REPORT INFORMATION
  Report Type: Spontaneous
  Country: US (occurrence: None)
  Receive Date: 20120912
  Receipt Date: 20120912
  Transmission Date: 20130627
  Serious: Yes (Other)
  Sender: FDA-Public Use
  Company Number: AXC-2012-000403

PATIENT
  Sex: Female

DRUGS (1)
  1. VIOKACE [Suspect]
     Indication: CYSTIC FIBROSIS
     Dates: start: 20120823

REACTIONS (4)
  - Burns third degree [None]
  - Skin exfoliation [None]
  - Skin haemorrhage [None]
  - Frequent bowel movements [None]
